FAERS Safety Report 25145921 (Version 1)
Quarter: 2025Q2

REPORT INFORMATION
  Report Type: Other
  Country: CN (occurrence: CN)
  Receive Date: 20250401
  Receipt Date: 20250401
  Transmission Date: 20250717
  Serious: Yes (Life-Threatening, Hospitalization, Other)
  Sender: COREPHARMA
  Company Number: CN-CorePharma LLC-2174036

PATIENT
  Age: 32 Year
  Sex: Female

DRUGS (1)
  1. AMLODIPINE BESYLATE [Suspect]
     Active Substance: AMLODIPINE BESYLATE
     Indication: Product used for unknown indication

REACTIONS (19)
  - Circulatory collapse [Recovered/Resolved]
  - Overdose [Unknown]
  - Hypotension [Recovered/Resolved]
  - Tachypnoea [Recovered/Resolved]
  - Somnolence [Recovered/Resolved]
  - Mean arterial pressure decreased [Recovered/Resolved]
  - Lethargy [Recovered/Resolved]
  - Vomiting [Recovered/Resolved]
  - Toxicity to various agents [Recovered/Resolved]
  - Left ventricular dysfunction [Recovered/Resolved]
  - Pulmonary vascular disorder [Recovered/Resolved]
  - Vascular resistance systemic decreased [Recovered/Resolved]
  - Vasodilatation [Recovered/Resolved]
  - Pneumonia [Recovered/Resolved]
  - Acute kidney injury [Recovered/Resolved]
  - Pulmonary oedema [Recovered/Resolved]
  - Acute left ventricular failure [Recovered/Resolved]
  - Distributive shock [Recovered/Resolved]
  - Cardiogenic shock [Recovered/Resolved]
